FAERS Safety Report 9324411 (Version 1)
Quarter: 2013Q2

REPORT INFORMATION
  Report Type: Spontaneous
  Country: GB (occurrence: GB)
  Receive Date: 20130603
  Receipt Date: 20130603
  Transmission Date: 20140414
  Serious: Yes (Hospitalization, Other)
  Sender: FDA-Public Use
  Company Number: GB-ASTRAZENECA-2013SE36424

PATIENT
  Age: 65 Year
  Sex: Male
  Weight: 74 kg

DRUGS (6)
  1. TICAGRELOR [Suspect]
     Indication: MYOCARDIAL INFARCTION
     Route: 048
     Dates: start: 20130213, end: 20130215
  2. ASPIRIN [Concomitant]
     Route: 048
     Dates: start: 20130213
  3. ATORVASTATIN [Concomitant]
     Dates: start: 20130213
  4. BISOPROLOL [Concomitant]
     Dates: start: 20130213
  5. GTN [Concomitant]
  6. RAMIPRIL [Concomitant]

REACTIONS (3)
  - Anaemia [Recovering/Resolving]
  - Telangiectasia [Recovering/Resolving]
  - Melaena [Recovering/Resolving]
